FAERS Safety Report 25595035 (Version 2)
Quarter: 2025Q3

REPORT INFORMATION
  Report Type: Spontaneous
  Country: US (occurrence: US)
  Receive Date: 20250723
  Receipt Date: 20250915
  Transmission Date: 20251020
  Serious: Yes (Hospitalization, Other)
  Sender: UCB
  Company Number: US-UCBSA-2025044202

PATIENT
  Age: 32 Year
  Sex: Female
  Weight: 71.2 kg

DRUGS (1)
  1. CIMZIA [Suspect]
     Active Substance: CERTOLIZUMAB PEGOL
     Indication: Ankylosing spondylitis
     Route: 058
     Dates: start: 202506, end: 2025

REACTIONS (2)
  - Multiple sclerosis [Recovering/Resolving]
  - Ankylosing spondylitis [Unknown]

NARRATIVE: CASE EVENT DATE: 20250601
